FAERS Safety Report 13207279 (Version 1)
Quarter: 2017Q1

REPORT INFORMATION
  Report Type: Spontaneous
  Country: US (occurrence: US)
  Receive Date: 20170209
  Receipt Date: 20170209
  Transmission Date: 20170428
  Serious: Yes (Life-Threatening, Hospitalization)
  Sender: FDA-Public Use
  Company Number: None

PATIENT
  Age: 23 Year
  Sex: Male
  Weight: 90 kg

DRUGS (3)
  1. DELTASONE [Suspect]
     Active Substance: PREDNISONE
     Indication: HYPERSENSITIVITY
     Dosage: ?          QUANTITY:1 TABLET(S);OTHER FREQUENCY:ONE TIME;?
     Route: 048
     Dates: start: 20170113, end: 20170113
  2. ONE A DAY MULTIVITAMINS [Concomitant]
  3. METROPOLOL XL [Concomitant]

REACTIONS (2)
  - Ventricular tachycardia [None]
  - Palpitations [None]

NARRATIVE: CASE EVENT DATE: 20170115
